FAERS Safety Report 7784736-0 (Version None)
Quarter: 2011Q3

REPORT INFORMATION
  Report Type: 
  Country: None (occurrence: None)
  Receive Date: 20110928
  Receipt Date: 20110923
  Transmission Date: 20111222
  Serious: Yes (Other)
  Sender: FDA-Public Use
  Company Number: US-AMGEN-USASP2011039266

PATIENT
  Age: 44 Year
  Sex: Male
  Weight: 80.726 kg

DRUGS (8)
  1. NPLATE [Suspect]
  2. TYLENOL (CAPLET) [Concomitant]
     Indication: PAIN
     Dosage: 500 MG, UNK
     Route: 048
  3. NPLATE [Suspect]
     Indication: IDIOPATHIC THROMBOCYTOPENIC PURPURA
     Dosage: 6 MUG/KG, QWK
     Route: 058
     Dates: start: 20110607, end: 20110728
  4. TYLENOL (CAPLET) [Concomitant]
     Indication: HEADACHE
  5. PLATELETS [Concomitant]
  6. B12                                /00056201/ [Concomitant]
  7. NPLATE [Suspect]
  8. PROMACTA [Concomitant]
     Indication: IDIOPATHIC THROMBOCYTOPENIC PURPURA
     Dosage: 75 MG, QD
     Route: 048
     Dates: start: 20110330

REACTIONS (9)
  - HEADACHE [None]
  - ERYTHROMELALGIA [None]
  - DRY SKIN [None]
  - HYPOAESTHESIA [None]
  - FATIGUE [None]
  - PAIN IN EXTREMITY [None]
  - SKIN EXFOLIATION [None]
  - MYALGIA [None]
  - PARAESTHESIA [None]
